FAERS Safety Report 5919906-7 (Version None)
Quarter: 2008Q4

REPORT INFORMATION
  Report Type: 
  Country: None (occurrence: None)
  Receive Date: 20081015
  Receipt Date: 20081002
  Transmission Date: 20090506
  Serious: Yes (Death, Hospitalization)
  Sender: FDA-Public Use
  Company Number: JP-AMGEN-US311786

PATIENT
  Age: 83 Year
  Sex: Female

DRUGS (1)
  1. ENBREL [Suspect]
     Indication: RHEUMATOID ARTHRITIS
     Dosage: LYOPHILIZED 25 MG TWICE WEEKLY
     Route: 058
     Dates: start: 20061113, end: 20080825

REACTIONS (2)
  - PNEUMONIA [None]
  - PNEUMONIA ASPIRATION [None]
